FAERS Safety Report 4667001-X (Version None)
Quarter: 2005Q2

REPORT INFORMATION
  Report Type: 
  Country: None (occurrence: None)
  Receive Date: 20050520
  Receipt Date: 20040630
  Transmission Date: 20051028
  Serious: Yes (Other)
  Sender: FDA-Public Use
  Company Number: PHEH2004US07160

PATIENT
  Age: 56 Year
  Sex: Female

DRUGS (6)
  1. TAXOTERE [Concomitant]
     Dates: start: 19980101, end: 20040501
  2. ANZEMET [Concomitant]
  3. DECADRON [Concomitant]
  4. VICODIN [Concomitant]
     Indication: PAIN
  5. IBUPROFEN [Concomitant]
     Indication: PAIN
  6. AREDIA [Suspect]
     Dates: start: 19980601, end: 20040501

REACTIONS (5)
  - ABSCESS [None]
  - JAW DISORDER [None]
  - ORAL SURGERY [None]
  - OSTEONECROSIS [None]
  - PAIN IN JAW [None]
